FAERS Safety Report 11489549 (Version 1)
Quarter: 2015Q3

REPORT INFORMATION
  Report Type: Spontaneous
  Country: US (occurrence: US)
  Receive Date: 20150910
  Receipt Date: 20150910
  Transmission Date: 20151125
  Serious: Yes (Hospitalization)
  Sender: FDA-Public Use
  Company Number: US-ROCHE-1632091

PATIENT
  Sex: Male

DRUGS (3)
  1. SUTENT [Suspect]
     Active Substance: SUNITINIB MALATE
     Indication: PRODUCT USED FOR UNKNOWN INDICATION
     Dosage: 28 DAYS THEN 14 DAYS OFF
     Route: 065
     Dates: start: 20150811, end: 20150825
  2. SUTENT [Suspect]
     Active Substance: SUNITINIB MALATE
     Dosage: 28 DAYS THEN 14 DAYS OFF
     Route: 065
     Dates: start: 20150811, end: 20150825
  3. ROCEPHIN [Suspect]
     Active Substance: CEFTRIAXONE SODIUM
     Indication: PRODUCT USED FOR UNKNOWN INDICATION
     Route: 065

REACTIONS (6)
  - Thrombocytopenia [Unknown]
  - Dehydration [Unknown]
  - Asthenia [Unknown]
  - Renal impairment [Unknown]
  - Fatigue [Unknown]
  - Pneumonia [Unknown]
